FAERS Safety Report 4541349-1 (Version None)
Quarter: 2004Q4

REPORT INFORMATION
  Report Type: 
  Country: None (occurrence: None)
  Receive Date: 20041229
  Receipt Date: 20041021
  Transmission Date: 20050328
  Serious: Yes (Hospitalization)
  Sender: FDA-Public Use
  Company Number: DE-MERCK-0410DEU00652

PATIENT
  Age: 58 Year
  Sex: Male
  Weight: 83 kg

DRUGS (8)
  1. VIOXX [Suspect]
     Indication: RHEUMATOID ARTHRITIS
     Route: 048
     Dates: start: 20000601, end: 20020318
  2. VIOXX [Suspect]
     Route: 048
     Dates: start: 20020319, end: 20040901
  3. METHOTREXATE [Concomitant]
     Route: 048
  4. PREDNISONE [Concomitant]
     Route: 048
  5. VERAPAMIL HYDROCHLORIDE [Concomitant]
     Route: 048
  6. VITAMIN B (UNSPECIFIED) [Concomitant]
     Route: 048
  7. HYDROCHLOROTHIAZIDE AND TRIAMTERENE [Concomitant]
     Route: 048
  8. FLUTAMIDE [Concomitant]
     Route: 048

REACTIONS (2)
  - DEEP VEIN THROMBOSIS [None]
  - THROMBOSIS [None]
